FAERS Safety Report 4842034-9 (Version None)
Quarter: 2005Q4

REPORT INFORMATION
  Report Type: 
  Country: None (occurrence: None)
  Receive Date: 20051130
  Receipt Date: 20050805
  Transmission Date: 20060501
  Serious: Yes (Other)
  Sender: FDA-Public Use
  Company Number: 2005UW11681

PATIENT
  Age: 72 Year
  Sex: Female
  Weight: 65.5 kg

DRUGS (11)
  1. CRESTOR [Suspect]
     Indication: HYPERLIPIDAEMIA
     Route: 048
     Dates: start: 20041019, end: 20050524
  2. ALTACE [Concomitant]
     Dates: start: 20010801
  3. ASPIRIN [Concomitant]
     Dates: start: 20000801
  4. AVANDIA [Concomitant]
     Route: 048
     Dates: start: 20000801
  5. GLYBURIDE [Concomitant]
     Dates: start: 20000801
  6. INDAPAMIDE [Concomitant]
     Dates: start: 20030501
  7. LOSEC [Concomitant]
     Route: 048
     Dates: start: 20041001
  8. METFORMIN [Concomitant]
     Dates: start: 20000801
  9. METOPROLOL [Concomitant]
     Dates: start: 20000801
  10. PLAVIX [Concomitant]
     Dates: start: 20041001
  11. TRAZODONE [Concomitant]
     Dates: start: 20030101

REACTIONS (2)
  - ALBUMIN URINE [None]
  - MICROALBUMINURIA [None]
